FAERS Safety Report 10562801 (Version 2)
Quarter: 2014Q4

REPORT INFORMATION
  Report Type: Spontaneous
  Country: JP (occurrence: JP)
  Receive Date: 20141104
  Receipt Date: 20141202
  Transmission Date: 20150529
  Serious: Yes (Other)
  Sender: FDA-Public Use
  Company Number: JP-TEVA-519782ISR

PATIENT
  Age: 0 Day
  Sex: Male
  Weight: 2.5 kg

DRUGS (7)
  1. CLONAZEPAM. [Suspect]
     Active Substance: CLONAZEPAM
     Route: 064
  2. BUPIVACAINE HYDROCHLORIDE HYDRATE [Concomitant]
     Route: 064
  3. MODIODAL TABLETS 100MG [Suspect]
     Active Substance: MODAFINIL
     Route: 064
  4. ANAFRANIL [Suspect]
     Active Substance: CLOMIPRAMINE HYDROCHLORIDE
     Route: 064
  5. AMOBARBITAL [Suspect]
     Active Substance: AMOBARBITAL
     Route: 064
  6. NITRAZEPAM [Suspect]
     Active Substance: NITRAZEPAM
     Route: 064
  7. FENTANYL CITRATE. [Concomitant]
     Active Substance: FENTANYL CITRATE
     Route: 064

REACTIONS (1)
  - Neonatal respiratory depression [Unknown]

NARRATIVE: CASE EVENT DATE: 20140520
